FAERS Safety Report 18763123 (Version 1)
Quarter: 2021Q1

REPORT INFORMATION
  Report Type: Spontaneous
  Country: US (occurrence: US)
  Receive Date: 20210120
  Receipt Date: 20210120
  Transmission Date: 20210419
  Serious: No
  Sender: FDA-Public Use
  Company Number: US-PFIZER INC-2020157061

PATIENT
  Age: 62 Year
  Sex: Female

DRUGS (4)
  1. PRISTIQ EXTENDED?RELEASE [Suspect]
     Active Substance: DESVENLAFAXINE SUCCINATE
     Dosage: 200 MG, 1X/DAY
     Route: 048
  2. PRISTIQ EXTENDED?RELEASE [Suspect]
     Active Substance: DESVENLAFAXINE SUCCINATE
     Dosage: 100 MG, 1X/DAY
     Route: 048
     Dates: start: 2020, end: 2020
  3. PRISTIQ EXTENDED?RELEASE [Suspect]
     Active Substance: DESVENLAFAXINE SUCCINATE
     Indication: MAJOR DEPRESSION
     Dosage: 100 MG, 2X/DAY
     Route: 048
     Dates: end: 202001
  4. PRISTIQ EXTENDED?RELEASE [Suspect]
     Active Substance: DESVENLAFAXINE SUCCINATE
     Dosage: 100 MG, 2X/DAY
     Route: 048
     Dates: start: 2020

REACTIONS (1)
  - Drug ineffective [Unknown]
